FAERS Safety Report 21934427 (Version 6)
Quarter: 2024Q4

REPORT INFORMATION
  Report Type: Spontaneous
  Country: CA (occurrence: CA)
  Receive Date: 20230201
  Receipt Date: 20241107
  Transmission Date: 20250114
  Serious: Yes (Hospitalization, Other)
  Sender: PFIZER
  Company Number: CA-PFIZER INC-202201307502

PATIENT
  Age: 44 Year
  Sex: Female

DRUGS (10)
  1. ABRILADA [Suspect]
     Active Substance: ADALIMUMAB-AFZB
     Indication: Rheumatoid arthritis
     Dosage: 40MG, 1 DOSE EVERY 2 WEEKS DISCONTINUED
     Route: 058
     Dates: start: 20221011
  2. ABRILADA [Suspect]
     Active Substance: ADALIMUMAB-AFZB
     Dosage: 40 MG, EVERY 2 WEEKS
     Route: 058
     Dates: start: 20230117
  3. BISOPROLOL [Concomitant]
     Active Substance: BISOPROLOL\BISOPROLOL FUMARATE
     Dosage: 1 DF, 1X/DAY, DOSAGE UNKNOWN 1/4 OF A PILL EVERY DAY
     Dates: start: 2023
  4. CORTEF [Concomitant]
     Active Substance: HYDROCORTISONE
     Dosage: 30 MG, 1X/DAY
     Dates: start: 202301
  5. DULOXETINE [Concomitant]
     Active Substance: DULOXETINE
     Dosage: 60 MG, DAILY
     Route: 048
  6. HYDROXYCHLOROQUINE SULFATE [Concomitant]
     Active Substance: HYDROXYCHLOROQUINE SULFATE
     Dosage: 400 MG
  7. HYDROXYCHLOROQUINE SULFATE [Concomitant]
     Active Substance: HYDROXYCHLOROQUINE SULFATE
     Dosage: 200 MG
  8. METHOTREXATE SODIUM [Concomitant]
     Active Substance: METHOTREXATE SODIUM
     Dosage: 12500 UG, WEEKLY
     Route: 048
     Dates: start: 202105
  9. MORPHINE [Concomitant]
     Active Substance: MORPHINE
     Dosage: UNK, AS NEEDED
  10. PREDNISONE [Concomitant]
     Active Substance: PREDNISONE
     Dosage: 10 MG, DAILY

REACTIONS (13)
  - Tachycardia [Unknown]
  - Dizziness [Unknown]
  - Dyspnoea [Unknown]
  - Heart rate increased [Recovering/Resolving]
  - Pneumonia legionella [Unknown]
  - Metapneumovirus pneumonia [Unknown]
  - Therapeutic product effect incomplete [Recovering/Resolving]
  - Arthralgia [Not Recovered/Not Resolved]
  - Loss of personal independence in daily activities [Not Recovered/Not Resolved]
  - Dyspnoea exertional [Not Recovered/Not Resolved]
  - Adrenal disorder [Unknown]
  - Thyroid disorder [Unknown]
  - Drug ineffective [Unknown]

NARRATIVE: CASE EVENT DATE: 20230101
